FAERS Safety Report 21257387 (Version 1)
Quarter: 2022Q3

REPORT INFORMATION
  Report Type: Spontaneous
  Country: US (occurrence: US)
  Receive Date: 20220826
  Receipt Date: 20220826
  Transmission Date: 20221027
  Serious: No
  Sender: FDA-Public Use
  Company Number: US-TEVA-2022-US-2063857

PATIENT
  Age: 55 Year
  Sex: Male

DRUGS (2)
  1. TADALAFIL [Suspect]
     Active Substance: TADALAFIL
     Indication: Erectile dysfunction
     Dosage: ONCE DAILY AS NEEDED
  2. TADALAFIL [Suspect]
     Active Substance: TADALAFIL
     Indication: Prostatic disorder

REACTIONS (2)
  - Penis disorder [Not Recovered/Not Resolved]
  - Penile curvature [Not Recovered/Not Resolved]

NARRATIVE: CASE EVENT DATE: 20220101
